FAERS Safety Report 23568507 (Version 3)
Quarter: 2025Q1

REPORT INFORMATION
  Report Type: Report from Study
  Country: GB (occurrence: GB)
  Receive Date: 20240227
  Receipt Date: 20250123
  Transmission Date: 20250409
  Serious: Yes (Hospitalization)
  Sender: ROCHE
  Company Number: GB-ROCHE-3515282

PATIENT
  Sex: Female

DRUGS (1)
  1. RISDIPLAM [Suspect]
     Active Substance: RISDIPLAM
     Indication: Product used for unknown indication
     Dosage: MEDICATION ARE GOING FROM TUBE
     Route: 050
     Dates: start: 20231109

REACTIONS (2)
  - Gastrointestinal disorder [Unknown]
  - Gallbladder disorder [Unknown]
